FAERS Safety Report 24556114 (Version 1)
Quarter: 2024Q4

REPORT INFORMATION
  Report Type: Spontaneous
  Country: US (occurrence: None)
  Receive Date: 20241026
  Receipt Date: 20241026
  Transmission Date: 20250114
  Serious: Yes (Disabling)
  Sender: Public
  Company Number: None

PATIENT
  Age: 83 Year
  Sex: Male
  Weight: 103.5 kg

DRUGS (14)
  1. KEYTRUDA [Suspect]
     Active Substance: PEMBROLIZUMAB
     Indication: Neoplasm malignant
     Dosage: OTHER FREQUENCY : 2 WEEK INFUSION;?
     Route: 042
     Dates: start: 20210813, end: 20211121
  2. HUMAN IMMUNOGLOBULIN G [Concomitant]
     Active Substance: HUMAN IMMUNOGLOBULIN G
  3. FUROSEMIDE [Concomitant]
     Active Substance: FUROSEMIDE
  4. HYDROCHLOROTHIAZIDE [Concomitant]
  5. Levothyroxone [Concomitant]
  6. LOSARTAN POTASSIUM [Concomitant]
  7. POTASSIUM CHLORIDE [Concomitant]
     Active Substance: POTASSIUM CHLORIDE
  8. SILODOSIN [Concomitant]
  9. TIMOLOL [Concomitant]
  10. TYLENOL [Concomitant]
  11. VITAMIN C [Concomitant]
     Active Substance: ASCORBIC ACID
  12. VITAMIN D3 [Concomitant]
     Active Substance: CHOLECALCIFEROL
  13. VITAMIN B12 [Concomitant]
     Active Substance: CYANOCOBALAMIN
  14. MAGNESIUM HYDROXIDE [Concomitant]
     Active Substance: MAGNESIUM HYDROXIDE

REACTIONS (10)
  - Peripheral coldness [None]
  - Balance disorder [None]
  - Fall [None]
  - Peripheral swelling [None]
  - Guillain-Barre syndrome [None]
  - Gait disturbance [None]
  - Hypoaesthesia [None]
  - Nonspecific reaction [None]
  - Pelvic fracture [None]
  - Pain in extremity [None]

NARRATIVE: CASE EVENT DATE: 20220107
